FAERS Safety Report 4683868-3 (Version None)
Quarter: 2005Q2

REPORT INFORMATION
  Report Type: 
  Country: None (occurrence: None)
  Receive Date: 20050606
  Receipt Date: 20050606
  Transmission Date: 20051028
  Serious: Yes (Life-Threatening, Hospitalization)
  Sender: FDA-Public Use
  Company Number: None

PATIENT
  Sex: Female
  Weight: 98.8842 kg

DRUGS (1)
  1. MERIDIA [Suspect]
     Indication: WEIGHT LOSS DIET
     Dosage: 10 MG-ONCE A DAY
     Dates: start: 20050201, end: 20050327

REACTIONS (1)
  - ARTERIOSPASM CORONARY [None]
